FAERS Safety Report 8433610-5 (Version None)
Quarter: 2012Q2

REPORT INFORMATION
  Report Type: 
  Country: None (occurrence: None)
  Receive Date: 20120323
  Receipt Date: 20110829
  Transmission Date: 20120825
  Serious: Yes (Life-Threatening, Other)
  Sender: FDA-Public Use
  Company Number: 163-21880-11071479

PATIENT
  Age: 79 Year
  Sex: Female
  Weight: 45.3597 kg

DRUGS (14)
  1. LISINOPRIL [Concomitant]
  2. ASPIRIN [Concomitant]
  3. FOSAMAX [Concomitant]
  4. LORAZEPAM [Concomitant]
  5. SPIRONOLACTONE [Concomitant]
  6. LEVOTHYROXINE SODIUM [Concomitant]
  7. LOPERAMIDE [Concomitant]
  8. DIGOXIN [Concomitant]
  9. VITAMIN D [Concomitant]
  10. REVLIMID [Suspect]
     Indication: MYELODYSPLASTIC SYNDROME
     Dosage: 10 MG, DAILY X 21 DAYS, THEN 7 DAYS OFF: 5 MG, DAILY X 21 DAYS, THEN 7 DAYS OFF: 2.5 MG, 1 IN 2D, PO
     Route: 048
     Dates: start: 20110520, end: 20110617
  11. REVLIMID [Suspect]
     Indication: MYELODYSPLASTIC SYNDROME
     Dosage: 10 MG, DAILY X 21 DAYS, THEN 7 DAYS OFF: 5 MG, DAILY X 21 DAYS, THEN 7 DAYS OFF: 2.5 MG, 1 IN 2D, PO
     Route: 048
     Dates: start: 20110131
  12. REVLIMID [Suspect]
     Indication: MYELODYSPLASTIC SYNDROME
     Dosage: 10 MG, DAILY X 21 DAYS, THEN 7 DAYS OFF: 5 MG, DAILY X 21 DAYS, THEN 7 DAYS OFF: 2.5 MG, 1 IN 2D, PO
     Route: 048
     Dates: start: 20100824
  13. CARVEDILOL [Concomitant]
  14. FUROSEMIDE [Concomitant]

REACTIONS (2)
  - PLATELET COUNT DECREASED [None]
  - BLOOD COUNT ABNORMAL [None]
